FAERS Safety Report 17671255 (Version 1)
Quarter: 2020Q2

REPORT INFORMATION
  Report Type: Spontaneous
  Country: FR (occurrence: FR)
  Receive Date: 20200415
  Receipt Date: 20200415
  Transmission Date: 20200713
  Serious: Yes (Other)
  Sender: FDA-Public Use
  Company Number: FR-MYLANLABS-2020M1037902

PATIENT
  Age: 41 Year
  Sex: Male
  Weight: 36 kg

DRUGS (1)
  1. MIDAZOLAM MYLAN 5 MG/ML, SOLUTION INJECTABLE (IM-IV) OU RECTALE [Suspect]
     Active Substance: MIDAZOLAM HYDROCHLORIDE
     Indication: PREMEDICATION
     Dosage: 3 MILLIGRAM
     Route: 042
     Dates: start: 20200303, end: 20200303

REACTIONS (2)
  - Respiratory distress [Recovered/Resolved]
  - Incorrect route of product administration [Recovered/Resolved]

NARRATIVE: CASE EVENT DATE: 20200303
